FAERS Safety Report 24003820 (Version 2)
Quarter: 2024Q3

REPORT INFORMATION
  Report Type: Report from Study
  Country: US (occurrence: US)
  Receive Date: 20240624
  Receipt Date: 20240707
  Transmission Date: 20241017
  Serious: Yes (Hospitalization)
  Sender: ROCHE
  Company Number: US-ROCHE-10000002868

PATIENT
  Age: 72 Year
  Sex: Male
  Weight: 58.97 kg

DRUGS (24)
  1. OCREVUS [Suspect]
     Active Substance: OCRELIZUMAB
     Indication: Relapsing-remitting multiple sclerosis
     Route: 042
     Dates: start: 2021
  2. AMPYRA [Concomitant]
     Active Substance: DALFAMPRIDINE
     Dosage: 50-02 MG
     Route: 048
  3. DOCUSATE [Concomitant]
     Active Substance: DOCUSATE
     Route: 048
     Dates: start: 202403
  4. PROTONIX [Concomitant]
     Active Substance: PANTOPRAZOLE SODIUM
     Route: 048
     Dates: start: 202403
  5. PROTONIX [Concomitant]
     Active Substance: PANTOPRAZOLE SODIUM
     Route: 048
     Dates: start: 202403
  6. ZOLOFT [Concomitant]
     Active Substance: SERTRALINE HYDROCHLORIDE
     Dosage: AS NEEDED
     Route: 048
  7. METFORMIN [Concomitant]
     Active Substance: METFORMIN HYDROCHLORIDE
     Indication: Type 2 diabetes mellitus
     Route: 048
  8. MIRALAX [Concomitant]
     Active Substance: POLYETHYLENE GLYCOL 3350
     Dosage: IN AM
     Route: 048
     Dates: start: 202403
  9. Pericolace [Concomitant]
     Dosage: 8.6-50 MG
     Route: 048
     Dates: start: 202403
  10. JARDIANCE [Concomitant]
     Active Substance: EMPAGLIFLOZIN
     Route: 048
     Dates: start: 202403
  11. NORCO [Concomitant]
     Active Substance: ACETAMINOPHEN\HYDROCODONE BITARTRATE
     Indication: Pain
     Dosage: 10-325 MG
     Route: 048
  12. DOCUSATE SODIUM [Concomitant]
     Active Substance: DOCUSATE SODIUM
     Indication: Constipation
     Route: 048
     Dates: start: 202404
  13. ZINC SULFATE [Concomitant]
     Active Substance: ZINC SULFATE
     Route: 048
     Dates: start: 202404
  14. SENNA [Concomitant]
     Active Substance: SENNA LEAF\SENNOSIDES\SENNOSIDES A AND B
     Dosage: TWO 8.6 MG TABLETS AT NIGHT
     Route: 048
     Dates: start: 202404
  15. PACERONE [Concomitant]
     Active Substance: AMIODARONE HYDROCHLORIDE
     Route: 048
     Dates: start: 202403
  16. PLAVIX [Concomitant]
     Active Substance: CLOPIDOGREL BISULFATE
     Route: 048
     Dates: start: 202403
  17. IMDUR [Concomitant]
     Active Substance: ISOSORBIDE MONONITRATE
     Dosage: IN AM
     Route: 048
     Dates: start: 202404
  18. LISINOPRIL [Concomitant]
     Active Substance: LISINOPRIL
     Route: 048
     Dates: start: 202403
  19. LIPITOR [Concomitant]
     Active Substance: ATORVASTATIN CALCIUM
     Dosage: AT NIGHT
     Route: 048
     Dates: start: 2023
  20. TOPROL XL [Concomitant]
     Active Substance: METOPROLOL SUCCINATE
     Route: 048
     Dates: start: 202403
  21. MORPHINE [Concomitant]
     Active Substance: MORPHINE
     Indication: Pain
     Dosage: 15 MG AT LUNCH AND DINNER
     Route: 048
     Dates: start: 2021
  22. MORPHINE [Concomitant]
     Active Substance: MORPHINE
     Dosage: 30 MG MORNING AND BEDTIME
     Route: 048
     Dates: start: 2021
  23. XANAX [Concomitant]
     Active Substance: ALPRAZOLAM
     Indication: Anxiety
     Dosage: AS NEEDED
     Route: 048
  24. BRILINTA [Concomitant]
     Active Substance: TICAGRELOR
     Route: 048
     Dates: start: 202403

REACTIONS (20)
  - Headache [Unknown]
  - Arterial occlusive disease [Not Recovered/Not Resolved]
  - Vomiting [Unknown]
  - Obstruction gastric [Recovered/Resolved]
  - Duodenogastric reflux [Unknown]
  - Pyrexia [Unknown]
  - Infection [Recovered/Resolved]
  - Delirium [Recovered/Resolved]
  - Haemoglobin decreased [Recovering/Resolving]
  - White blood cell count increased [Recovered/Resolved]
  - Near death experience [Recovered/Resolved]
  - Internal haemorrhage [Recovered/Resolved]
  - Back pain [Unknown]
  - Depressed mood [Unknown]
  - Asthenia [Unknown]
  - Decubitus ulcer [Recovered/Resolved]
  - Decubitus ulcer [Recovered/Resolved]
  - Weight decreased [Recovered/Resolved]
  - Constipation [Recovered/Resolved]
  - Diarrhoea [Recovered/Resolved]

NARRATIVE: CASE EVENT DATE: 20240201
